FAERS Safety Report 24085877 (Version 4)
Quarter: 2024Q3

REPORT INFORMATION
  Report Type: Spontaneous
  Country: GB (occurrence: GB)
  Receive Date: 20240712
  Receipt Date: 20240821
  Transmission Date: 20241017
  Serious: No
  Sender: SANDOZ
  Company Number: GB-SANDOZ-SDZ2023GB055724

PATIENT
  Age: 56 Year
  Sex: Female

DRUGS (41)
  1. ESTRADIOL [Suspect]
     Active Substance: ESTRADIOL
     Indication: Product used for unknown indication
     Dosage: 50 MG
     Route: 062
  2. ESTRADIOL [Suspect]
     Active Substance: ESTRADIOL
     Dosage: 50 MG
     Route: 062
  3. ESTRADIOL [Suspect]
     Active Substance: ESTRADIOL
     Dosage: 50 MG
     Route: 062
  4. ESTRADIOL [Suspect]
     Active Substance: ESTRADIOL
     Dosage: 50 MG
     Route: 062
  5. ESTRADIOL [Suspect]
     Active Substance: ESTRADIOL
     Dosage: 50 MG
     Route: 062
  6. ESTRADIOL [Suspect]
     Active Substance: ESTRADIOL
     Dosage: 50 MG
     Route: 062
  7. ESTRADIOL [Suspect]
     Active Substance: ESTRADIOL
     Dosage: 50 MG
     Route: 062
  8. ESTRADIOL [Suspect]
     Active Substance: ESTRADIOL
     Dosage: 50 UG
     Route: 062
  9. ESTRADIOL [Suspect]
     Active Substance: ESTRADIOL
     Dosage: 50 UG
     Route: 062
  10. ESTRADIOL [Suspect]
     Active Substance: ESTRADIOL
     Dosage: 50 UG
     Route: 062
  11. ESTRADIOL [Suspect]
     Active Substance: ESTRADIOL
     Dosage: 50 UG
     Route: 062
  12. ESTRADIOL [Suspect]
     Active Substance: ESTRADIOL
     Dosage: 50 UG
     Route: 062
  13. ESTRADIOL [Suspect]
     Active Substance: ESTRADIOL
     Dosage: 50 UG
     Route: 062
  14. ESTRADIOL [Suspect]
     Active Substance: ESTRADIOL
     Dosage: 50 UG
     Route: 062
  15. ESTRADIOL [Suspect]
     Active Substance: ESTRADIOL
     Dosage: 50 UG
     Route: 062
  16. ESTRADIOL [Suspect]
     Active Substance: ESTRADIOL
     Dosage: 50 UG
     Route: 062
  17. ESTRADIOL [Suspect]
     Active Substance: ESTRADIOL
     Dosage: 50 UG
     Route: 062
  18. ESTRADIOL [Suspect]
     Active Substance: ESTRADIOL
     Dosage: 50 UG
     Route: 062
  19. ESTRADIOL [Suspect]
     Active Substance: ESTRADIOL
     Dosage: 50 UG
     Route: 062
  20. ESTRADIOL [Suspect]
     Active Substance: ESTRADIOL
     Dosage: 75 MG
     Route: 065
  21. ESTRADIOL [Suspect]
     Active Substance: ESTRADIOL
     Dosage: 75 MG, UNK
     Route: 062
  22. ESTRADIOL [Suspect]
     Active Substance: ESTRADIOL
     Dosage: 75 MG, UNK
     Route: 062
  23. ESTRADIOL [Suspect]
     Active Substance: ESTRADIOL
     Dosage: 75 MG, UNK
     Route: 062
  24. ESTRADIOL [Suspect]
     Active Substance: ESTRADIOL
     Dosage: 75 MG, UNK
     Route: 065
  25. ESTRADIOL [Suspect]
     Active Substance: ESTRADIOL
     Dosage: 75 MG, UNK
     Route: 065
  26. ESTRADIOL [Suspect]
     Active Substance: ESTRADIOL
     Dosage: 75 UG
     Route: 062
  27. ESTRADIOL [Suspect]
     Active Substance: ESTRADIOL
     Dosage: 75 UG
     Route: 062
  28. ESTRADIOL [Suspect]
     Active Substance: ESTRADIOL
     Dosage: 75 UG
     Route: 065
  29. ESTRADIOL [Suspect]
     Active Substance: ESTRADIOL
     Dosage: 75 UG
     Route: 065
  30. ESTRADIOL [Suspect]
     Active Substance: ESTRADIOL
     Dosage: 75 UG, UNK
     Route: 062
  31. ESTRADIOL [Suspect]
     Active Substance: ESTRADIOL
     Dosage: 75 UG, UNK
     Route: 062
  32. ESTRADIOL [Suspect]
     Active Substance: ESTRADIOL
     Dosage: 75 UG, UNK
     Route: 062
  33. ESTRADIOL [Suspect]
     Active Substance: ESTRADIOL
     Dosage: 75 UG, UNK
     Route: 062
  34. ESTRADIOL [Suspect]
     Active Substance: ESTRADIOL
     Dosage: 75 UG, UNK
     Route: 062
  35. ESTRADIOL [Suspect]
     Active Substance: ESTRADIOL
     Dosage: 75 UG, UNK
     Route: 065
  36. ESTRADIOL [Suspect]
     Active Substance: ESTRADIOL
     Dosage: 75 UG, UNK
     Route: 065
  37. ESTRADIOL [Suspect]
     Active Substance: ESTRADIOL
     Dosage: 75 UG
     Route: 065
  38. ESTRADIOL [Suspect]
     Active Substance: ESTRADIOL
     Dosage: 75 UG, UNK
     Route: 062
  39. ESTRADIOL HEMIHYDRATE [Suspect]
     Active Substance: ESTRADIOL HEMIHYDRATE
     Dosage: 50 MICROGRAM
     Route: 062
  40. ESTRADIOL HEMIHYDRATE [Suspect]
     Active Substance: ESTRADIOL HEMIHYDRATE
     Dosage: 50 UG
     Route: 062
  41. ESTRADIOL HEMIHYDRATE [Suspect]
     Active Substance: ESTRADIOL HEMIHYDRATE
     Indication: Product used for unknown indication
     Dosage: 75 UG
     Route: 065

REACTIONS (2)
  - Haemorrhage [Unknown]
  - Vaginal discharge [Unknown]
